FAERS Safety Report 9601840 (Version 3)
Quarter: 2014Q1

REPORT INFORMATION
  Report Type: Spontaneous
  Country: US (occurrence: US)
  Receive Date: 20131007
  Receipt Date: 20140131
  Transmission Date: 20141002
  Serious: Yes (Hospitalization, Other)
  Sender: FDA-Public Use
  Company Number: US-UCBSA-099065

PATIENT
  Age: 24 Year
  Sex: Male
  Weight: 70.3 kg

DRUGS (10)
  1. VIMPAT [Suspect]
     Indication: CONVULSION
     Route: 048
     Dates: start: 20130827, end: 20130901
  2. VIMPAT [Suspect]
     Indication: CONVULSION
     Route: 048
     Dates: start: 20130902, end: 20130919
  3. VIMPAT [Suspect]
     Indication: CONVULSION
     Route: 048
     Dates: start: 20130920, end: 201309
  4. LAMICTAL [Concomitant]
     Indication: CONVULSION
     Dosage: STARTED IN 2009 OR 2010
     Route: 048
  5. LAMICTAL [Concomitant]
     Indication: CONVULSION
     Dosage: TWO 200MG PILLS IN AM AND TWO 200MG PILLS IN PM
     Route: 048
  6. DIAZEPAM [Concomitant]
     Indication: CONVULSION
     Dosage: 1 YEAR AGO, LIQUOD, ONLY FOR SEIZURE LASTING MORE THAN 2 MINUTES
     Route: 048
  7. VALSARTAN [Concomitant]
     Indication: HYPERTENSION
     Dosage: 2 YEARS AGO
     Route: 048
  8. BYSTOLIC [Concomitant]
     Indication: HYPERTENSION
     Dosage: 2 YEARS AGO
     Route: 048
  9. PREVACID [Concomitant]
     Indication: GASTROOESOPHAGEAL REFLUX DISEASE
     Route: 048
     Dates: start: 2007
  10. LOSARTIN [Concomitant]
     Indication: HYPERTENSION
     Route: 048

REACTIONS (6)
  - Blindness [Recovered/Resolved]
  - Convulsion [Recovered/Resolved]
  - Dizziness [Recovered/Resolved]
  - Fatigue [Recovered/Resolved]
  - Drug hypersensitivity [Unknown]
  - Muscle twitching [Recovered/Resolved]
